FAERS Safety Report 4771288-2 (Version None)
Quarter: 2005Q3

REPORT INFORMATION
  Report Type: 
  Country: None (occurrence: None)
  Receive Date: 20050915
  Receipt Date: 20050831
  Transmission Date: 20060218
  Serious: Yes (Other)
  Sender: FDA-Public Use
  Company Number: HQWYE240102SEP05

PATIENT

DRUGS (1)
  1. RAPAMUNE [Suspect]
     Dosage: 2 MG 1X PER 1 DAY
     Dates: end: 20050401

REACTIONS (2)
  - DRUG EXPOSURE DURING PREGNANCY [None]
  - PREMATURE BABY [None]
